FAERS Safety Report 13671042 (Version 1)
Quarter: 2017Q2

REPORT INFORMATION
  Report Type: Spontaneous
  Country: US (occurrence: US)
  Receive Date: 20170620
  Receipt Date: 20170620
  Transmission Date: 20170830
  Serious: No
  Sender: FDA-Public Use
  Company Number: US-ROCHE-1525631

PATIENT
  Age: 69 Year
  Sex: Female

DRUGS (2)
  1. XELODA [Suspect]
     Active Substance: CAPECITABINE
     Dosage: PM
     Route: 048
     Dates: start: 20141106
  2. XELODA [Suspect]
     Active Substance: CAPECITABINE
     Indication: NEOPLASM MALIGNANT
     Dosage: AM
     Route: 048
     Dates: start: 20141106

REACTIONS (4)
  - Hypoaesthesia [Unknown]
  - Dry skin [Unknown]
  - Fatigue [Not Recovered/Not Resolved]
  - Pruritus [Unknown]

NARRATIVE: CASE EVENT DATE: 201501
